FAERS Safety Report 7898277-3 (Version None)
Quarter: 2011Q4

REPORT INFORMATION
  Report Type: 
  Country: None (occurrence: None)
  Receive Date: 20111107
  Receipt Date: 20111028
  Transmission Date: 20120403
  Serious: Yes (Other)
  Sender: FDA-Public Use
  Company Number: JP-VIIV HEALTHCARE LIMITED-B0759605A

PATIENT
  Age: 30 Year
  Sex: Male

DRUGS (2)
  1. LEXIVA [Suspect]
     Indication: HIV INFECTION
     Dosage: 4IUAX PER DAY
     Route: 048
     Dates: start: 20110701, end: 20111026
  2. TRUVADA [Suspect]
     Indication: HIV INFECTION
     Dosage: 500MG PER DAY
     Route: 048
     Dates: start: 20110701, end: 20111026

REACTIONS (1)
  - HEPATIC FUNCTION ABNORMAL [None]
